FAERS Safety Report 4810935-3 (Version None)
Quarter: 2005Q4

REPORT INFORMATION
  Report Type: 
  Country: None (occurrence: None)
  Receive Date: 20051027
  Receipt Date: 20051019
  Transmission Date: 20060501
  Serious: Yes (Hospitalization)
  Sender: FDA-Public Use
  Company Number: 2005UW15673

PATIENT
  Age: 17611 Day
  Sex: Male

DRUGS (2)
  1. ELAVIL [Suspect]
     Indication: DEPRESSION
     Route: 048
     Dates: start: 19990624
  2. CLOZAPINE [Suspect]
     Indication: DEPRESSION
     Dosage: 100-500 MG
     Route: 048
     Dates: start: 19990114

REACTIONS (2)
  - DRUG ABUSER [None]
  - TREATMENT NONCOMPLIANCE [None]
